FAERS Safety Report 18647718 (Version 1)
Quarter: 2020Q4

REPORT INFORMATION
  Report Type: Spontaneous
  Country: US (occurrence: US)
  Receive Date: 20201221
  Receipt Date: 20201221
  Transmission Date: 20210114
  Serious: Yes (Other)
  Sender: FDA-Public Use
  Company Number: None

PATIENT
  Age: 61 Year
  Sex: Female
  Weight: 71.7 kg

DRUGS (2)
  1. BAMLANIVIMAB. [Concomitant]
     Active Substance: BAMLANIVIMAB
     Dates: start: 20201221, end: 20201221
  2. BAMLANIVIMAB. [Suspect]
     Active Substance: BAMLANIVIMAB
     Indication: SARS-COV-2 TEST POSITIVE
     Dosage: ?          OTHER FREQUENCY:1 TIME;?
     Route: 041
     Dates: start: 20201221, end: 20201221

REACTIONS (5)
  - Spinal pain [None]
  - Infusion related reaction [None]
  - Chest pain [None]
  - Bone pain [None]
  - Headache [None]

NARRATIVE: CASE EVENT DATE: 20201221
